FAERS Safety Report 5739631-5 (Version None)
Quarter: 2008Q2

REPORT INFORMATION
  Report Type: 
  Country: None (occurrence: None)
  Receive Date: 20080513
  Receipt Date: 20071115
  Transmission Date: 20081010
  Serious: Yes (Other)
  Sender: FDA-Public Use
  Company Number: 80834

PATIENT
  Age: 16 Year

DRUGS (2)
  1. IBUPROFEN [Suspect]
     Indication: PAIN
     Dosage: 400MG/ORAL
     Route: 048
     Dates: start: 20070915, end: 20070923
  2. ACETAMINOPHEN [Concomitant]

REACTIONS (1)
  - PANCREATITIS [None]
